FAERS Safety Report 17898373 (Version 1)
Quarter: 2020Q2

REPORT INFORMATION
  Report Type: Spontaneous
  Country: CH (occurrence: CH)
  Receive Date: 20200616
  Receipt Date: 20200616
  Transmission Date: 20200714
  Serious: Yes (Other)
  Sender: FDA-Public Use
  Company Number: CH-ROCHE-2615733

PATIENT
  Age: 63 Year
  Sex: Male

DRUGS (13)
  1. FENTANYL. [Suspect]
     Active Substance: FENTANYL
     Indication: PRODUCT USED FOR UNKNOWN INDICATION
     Route: 042
  2. AZITHROMYCIN ANHYDROUS. [Suspect]
     Active Substance: AZITHROMYCIN ANHYDROUS
     Indication: PNEUMONIA
  3. ACTEMRA [Suspect]
     Active Substance: TOCILIZUMAB
     Indication: COVID-19
     Route: 042
     Dates: start: 20200324, end: 20200324
  4. MIDAZOLAM. [Suspect]
     Active Substance: MIDAZOLAM
     Indication: PRODUCT USED FOR UNKNOWN INDICATION
     Route: 042
  5. AZITHROMYCIN ANHYDROUS. [Suspect]
     Active Substance: AZITHROMYCIN ANHYDROUS
     Indication: COVID-19
     Route: 048
     Dates: start: 20200323, end: 20200325
  6. ACTEMRA [Suspect]
     Active Substance: TOCILIZUMAB
     Indication: PNEUMONIA
     Route: 042
     Dates: start: 20200325, end: 20200325
  7. PLAQUENIL [Suspect]
     Active Substance: HYDROXYCHLOROQUINE SULFATE
     Indication: COVID-19
     Route: 048
     Dates: start: 20200321, end: 20200323
  8. CO-AMOXICILLIN [Suspect]
     Active Substance: AMOXICILLIN\CLAVULANATE POTASSIUM
     Indication: COVID-19
     Route: 042
     Dates: start: 20200322, end: 20200327
  9. ATRACURIUM [Suspect]
     Active Substance: ATRACURIUM
     Indication: PRODUCT USED FOR UNKNOWN INDICATION
     Route: 042
  10. PLAQUENIL [Suspect]
     Active Substance: HYDROXYCHLOROQUINE SULFATE
     Indication: PNEUMONIA
     Route: 048
     Dates: start: 20200326, end: 20200328
  11. CO-AMOXICILLIN [Suspect]
     Active Substance: AMOXICILLIN\CLAVULANATE POTASSIUM
     Indication: PNEUMONIA
  12. PROPOFOL LIPURO [Suspect]
     Active Substance: PROPOFOL
     Indication: PRODUCT USED FOR UNKNOWN INDICATION
     Route: 042
  13. NORADRENALINE [NOREPINEPHRINE] [Suspect]
     Active Substance: NOREPINEPHRINE
     Indication: PRODUCT USED FOR UNKNOWN INDICATION
     Route: 042

REACTIONS (4)
  - Blister [Recovering/Resolving]
  - Necrosis [Recovering/Resolving]
  - Arterial thrombosis [Recovering/Resolving]
  - Dry gangrene [Recovering/Resolving]

NARRATIVE: CASE EVENT DATE: 20200324
